FAERS Safety Report 24727976 (Version 2)
Quarter: 2025Q1

REPORT INFORMATION
  Report Type: Spontaneous
  Country: JP (occurrence: JP)
  Receive Date: 20241212
  Receipt Date: 20250113
  Transmission Date: 20250408
  Serious: Yes (Hospitalization, Other)
  Sender: BAUSCH AND LOMB
  Company Number: JP-BAUSCH-BL-2024-018150

PATIENT
  Age: 7 Decade
  Sex: Male

DRUGS (1)
  1. BRODALUMAB [Suspect]
     Active Substance: BRODALUMAB
     Indication: Erythrodermic psoriasis
     Route: 058
     Dates: start: 202411

REACTIONS (1)
  - Angle closure glaucoma [Recovered/Resolved]
